FAERS Safety Report 10063054 (Version 1)
Quarter: 2014Q1

REPORT INFORMATION
  Report Type: Spontaneous
  Country: US (occurrence: None)
  Receive Date: 20140327
  Receipt Date: 20140327
  Transmission Date: 20141002
  Serious: Yes (Other)
  Sender: FDA-Public Use
  Company Number: 2013P1010705

PATIENT
  Age: 91 Year
  Sex: Female

DRUGS (1)
  1. SANTYL OINTMENT (NO PREF. NAME) [Suspect]
     Indication: DECUBITUS ULCER
     Route: 061

REACTIONS (1)
  - Drug effect decreased [None]
